FAERS Safety Report 9285347 (Version 2)
Quarter: 2013Q2

REPORT INFORMATION
  Report Type: Spontaneous
  Country: US (occurrence: US)
  Receive Date: 20130513
  Receipt Date: 20130614
  Transmission Date: 20140414
  Serious: Yes (Death)
  Sender: FDA-Public Use
  Company Number: US-ASTELLAS-2013US004948

PATIENT
  Age: 59 Year
  Sex: Male

DRUGS (1)
  1. PROGRAF [Suspect]
     Indication: LUNG TRANSPLANT
     Dosage: 4 MG IN THE MORNING, 3 MG IN THE EVENING
     Route: 048
     Dates: start: 20110415, end: 201209

REACTIONS (2)
  - Off label use [Unknown]
  - Disease complication [Fatal]
